FAERS Safety Report 9687591 (Version 2)
Quarter: 2013Q4

REPORT INFORMATION
  Report Type: Spontaneous
  Country: US (occurrence: US)
  Receive Date: 20131114
  Receipt Date: 20131211
  Transmission Date: 20140711
  Serious: Yes (Hospitalization, Other)
  Sender: FDA-Public Use
  Company Number: US-TEVA-444282USA

PATIENT
  Age: 51 Year
  Sex: 0

DRUGS (1)
  1. CLOZAPINE [Suspect]

REACTIONS (3)
  - Colorectal cancer stage IV [Unknown]
  - Leukopenia [Recovered/Resolved]
  - Neutrophil count decreased [Recovered/Resolved]
